FAERS Safety Report 14276119 (Version 1)
Quarter: 2017Q4

REPORT INFORMATION
  Report Type: Report from Study
  Country: CA (occurrence: CA)
  Receive Date: 20171212
  Receipt Date: 20171212
  Transmission Date: 20180321
  Serious: Yes (Other)
  Sender: FDA-Public Use
  Company Number: CA-ASTRAZENECA-2017SF25619

PATIENT
  Age: 74 Year
  Sex: Female

DRUGS (1)
  1. FASLODEX [Suspect]
     Active Substance: FULVESTRANT
     Indication: BREAST CANCER METASTATIC
     Route: 030
     Dates: start: 20170112

REACTIONS (6)
  - Bladder irritation [Unknown]
  - Bone cancer [Unknown]
  - Contrast media allergy [Unknown]
  - Swollen tongue [Unknown]
  - Amnesia [Unknown]
  - Pharyngeal oedema [Unknown]
